FAERS Safety Report 11270861 (Version 2)
Quarter: 2015Q3

REPORT INFORMATION
  Report Type: Spontaneous
  Country: FR (occurrence: FR)
  Receive Date: 20150714
  Receipt Date: 20150814
  Transmission Date: 20151125
  Serious: Yes (Hospitalization)
  Sender: FDA-Public Use
  Company Number: FR-PFIZER INC-2015224845

PATIENT
  Age: 75 Year
  Sex: Female

DRUGS (12)
  1. CELLCEPT [Concomitant]
     Active Substance: MYCOPHENOLATE MOFETIL\MYCOPHENOLATE MOFETIL HYDROCHLORIDE
     Dosage: 500 MG, 2X/DAY
  2. PERFALGAN [Concomitant]
     Active Substance: ACETAMINOPHEN
     Dosage: 50 MG, AS NEEDED
  3. SODIUM BICARBONATE. [Concomitant]
     Active Substance: SODIUM BICARBONATE
     Dosage: 1 G, DAILY (AS NEEDED)
  4. MOPRAL [Suspect]
     Active Substance: OMEPRAZOLE SODIUM
     Dosage: 20 MG, DAILY
     Route: 048
     Dates: end: 20150605
  5. ATIVAN [Concomitant]
     Active Substance: LORAZEPAM
     Dosage: 30 MG, DAILY
  6. UVEDOSE [Concomitant]
     Active Substance: CHOLECALCIFEROL
     Dosage: 1 DF, EVERY 3 MONTHS
  7. PROGRAF [Concomitant]
     Active Substance: TACROLIMUS\TACROLIMUS ANHYDROUS
     Dosage: 2 MG, DAILY (2 DF OF 1 MG)
  8. EUPRESSYL [Concomitant]
     Active Substance: URAPIDIL
     Dosage: 90MG, DAILY (30 MG IN THE MORNING + 60 MG IN THE EVENING)
  9. TAHOR [Suspect]
     Active Substance: ATORVASTATIN CALCIUM
     Dosage: 20 MG, 1X/DAY
     Route: 048
     Dates: end: 20150605
  10. LEXOMIL [Concomitant]
     Active Substance: BROMAZEPAM
     Dosage: 0.25 DF, 1X/DAY (EVENING)
  11. AMLOR [Concomitant]
     Active Substance: AMLODIPINE BESYLATE
     Dosage: 10 MG, DAILY (2 DF OF 5 MG)
  12. TEMERIT [Concomitant]
     Active Substance: NEBIVOLOL
     Dosage: 2.5 MG, DAILY (0.5 DF OF 5 MG)

REACTIONS (3)
  - Balance disorder [Unknown]
  - Weight decreased [Unknown]
  - Thrombocytopenia [Recovered/Resolved]

NARRATIVE: CASE EVENT DATE: 20150529
